FAERS Safety Report 21838588 (Version 1)
Quarter: 2023Q1

REPORT INFORMATION
  Report Type: Spontaneous
  Country: US (occurrence: None)
  Receive Date: 20230108
  Receipt Date: 20230108
  Transmission Date: 20230418
  Serious: Yes (Disabling)
  Sender: FDA-Public Use
  Company Number: None

PATIENT
  Age: 65 Year
  Sex: Female
  Weight: 60.75 kg

DRUGS (6)
  1. NP THYROID [Suspect]
     Active Substance: LEVOTHYROXINE\LIOTHYRONINE
     Indication: Hypothyroidism
     Dosage: OTHER QUANTITY : 60 TABLET(S);?FREQUENCY : DAILY;?
     Route: 048
     Dates: start: 20221219, end: 20230104
  2. ARMOUR THYROID [Concomitant]
     Active Substance: THYROID, PORCINE
  3. VITAMIN B COMPLEX [Concomitant]
     Active Substance: CYANOCOBALAMIN\DEXPANTHENOL\NIACINAMIDE\PYRIDOXINE HYDROCHLORIDE\RIBOFLAVIN 5^-PHOSPHATE SODIUM\THIA
  4. CETIRIZINE [Concomitant]
     Active Substance: CETIRIZINE HYDROCHLORIDE
  5. ALBUTEROL [Concomitant]
     Active Substance: ALBUTEROL
  6. FLUTICASONE [Concomitant]
     Active Substance: FLUTICASONE

REACTIONS (7)
  - Eye swelling [None]
  - Sneezing [None]
  - Lacrimation increased [None]
  - Hypoaesthesia [None]
  - Tinnitus [None]
  - Cough [None]
  - Product odour abnormal [None]

NARRATIVE: CASE EVENT DATE: 20221219
